FAERS Safety Report 7629007-8 (Version None)
Quarter: 2011Q3

REPORT INFORMATION
  Report Type: 
  Country: None (occurrence: None)
  Receive Date: 20110722
  Receipt Date: 20110506
  Transmission Date: 20111222
  Serious: No
  Sender: FDA-Public Use
  Company Number: US-BAYER-2011-040936

PATIENT
  Age: 78 Year
  Sex: Male
  Weight: 87 kg

DRUGS (4)
  1. ALEVE (CAPLET) [Suspect]
     Dosage: 1 DF, BID
     Route: 048
  2. THYROID TAB [Concomitant]
  3. ANTIHYPERTENSIVES [Concomitant]
  4. ASPIRIN [Concomitant]

REACTIONS (2)
  - LIP SWELLING [None]
  - FEELING HOT [None]
